FAERS Safety Report 9498661 (Version 3)
Quarter: 2013Q3

REPORT INFORMATION
  Report Type: Report from Study
  Country: CA (occurrence: CA)
  Receive Date: 20130904
  Receipt Date: 20130911
  Transmission Date: 20140515
  Serious: Yes (Hospitalization, Other)
  Sender: FDA-Public Use
  Company Number: CA-ABBOTT-13P-028-1138563-00

PATIENT
  Age: 45 Year
  Sex: Female
  Weight: 61.29 kg

DRUGS (2)
  1. HUMIRA [Suspect]
     Indication: CROHN^S DISEASE
     Route: 058
     Dates: start: 20130305, end: 20130704
  2. ZOPLICONE [Concomitant]
     Indication: SLEEP DISORDER THERAPY
     Dosage: NOT REPORTED

REACTIONS (3)
  - Adhesion [Recovering/Resolving]
  - Postoperative wound infection [Unknown]
  - Abscess [Recovering/Resolving]
